FAERS Safety Report 16385287 (Version 1)
Quarter: 2019Q2

REPORT INFORMATION
  Report Type: Spontaneous
  Country: US (occurrence: US)
  Receive Date: 20190603
  Receipt Date: 20190603
  Transmission Date: 20190711
  Serious: No
  Sender: FDA-Public Use
  Company Number: US-PFIZER INC-2019232671

PATIENT
  Age: 75 Year
  Sex: Male
  Weight: 112.94 kg

DRUGS (3)
  1. LYRICA [Suspect]
     Active Substance: PREGABALIN
     Dosage: 50 MG, TWO IN THE MORNING, ONE AT NOON AND ONE AT NIGHT
  2. LYRICA [Suspect]
     Active Substance: PREGABALIN
     Dosage: 100MG, 3X/DAY (TWO 50 MG IN THE MORNING, NOON TIME AND AFTER SUPPER)
  3. LYRICA [Suspect]
     Active Substance: PREGABALIN
     Indication: DIABETIC NEUROPATHY
     Dosage: 50 MG, 2X/DAY (50 MG CAPSULE IN THE MORNING AND ONE 50 MG AT NOON TIME)

REACTIONS (5)
  - Weight decreased [Unknown]
  - Oedema peripheral [Unknown]
  - Drug ineffective [Unknown]
  - Intentional product use issue [Unknown]
  - Mobility decreased [Unknown]
